FAERS Safety Report 13019352 (Version 2)
Quarter: 2016Q4

REPORT INFORMATION
  Report Type: Spontaneous
  Country: US (occurrence: US)
  Receive Date: 20161212
  Receipt Date: 20161215
  Transmission Date: 20170207
  Serious: Yes (Other)
  Sender: FDA-Public Use
  Company Number: US-PFIZER INC-2016572030

PATIENT
  Age: 64 Year
  Sex: Female

DRUGS (4)
  1. SYNTHROID [Concomitant]
     Active Substance: LEVOTHYROXINE SODIUM
     Indication: THYROID DISORDER
     Dosage: 88 UG, 1X/DAY
  2. ESTRADIOL W/NORETHISTERONE ACETATE [Concomitant]
     Indication: DYSPAREUNIA
     Dosage: 1MG/0.05NG, DAILY
  3. PANTOPRAZOLE [Concomitant]
     Active Substance: PANTOPRAZOLE SODIUM
     Indication: GASTROOESOPHAGEAL REFLUX DISEASE
     Dosage: 40 MG, ALTERNATE DAY (EVERY OTHER DAY)
     Dates: start: 2013
  4. PREMARIN [Suspect]
     Active Substance: ESTROGENS, CONJUGATED
     Indication: DYSPAREUNIA
     Dosage: 0.5 G, 1X/DAY

REACTIONS (4)
  - Pain [Unknown]
  - Expired product administered [Unknown]
  - Breast disorder [Not Recovered/Not Resolved]
  - Bacterial vaginosis [Recovered/Resolved]

NARRATIVE: CASE EVENT DATE: 201509
